FAERS Safety Report 8708196 (Version 2)
Quarter: 2012Q4

REPORT INFORMATION
  Report Type: Report from Study
  Country: JP (occurrence: JP)
  Receive Date: 20120806
  Receipt Date: 20120906
  Transmission Date: 20130627
  Serious: Yes (Hospitalization)
  Sender: FDA-Public Use
  Company Number: JP-JNJFOC-20120708050

PATIENT
  Age: 67 Year
  Sex: Male
  Weight: 72 kg

DRUGS (12)
  1. FENTANYL [Suspect]
     Indication: BACK PAIN
     Route: 062
     Dates: start: 20111124
  2. FENTANYL [Suspect]
     Indication: BACK PAIN
     Route: 062
     Dates: start: 20111118, end: 20111123
  3. GABAPEN [Concomitant]
     Indication: PAIN
     Route: 048
     Dates: start: 20120112, end: 20120627
  4. GABAPEN [Concomitant]
     Indication: PAIN
     Route: 048
     Dates: end: 20111228
  5. LYRICA [Concomitant]
     Indication: LUMBAR SPINAL STENOSIS
     Route: 048
     Dates: end: 20111227
  6. LYRICA [Concomitant]
     Indication: LUMBAR SPINAL STENOSIS
     Route: 048
     Dates: start: 20120627
  7. LYRICA [Concomitant]
     Indication: LUMBAR SPINAL STENOSIS
     Route: 048
     Dates: start: 20120111, end: 20120626
  8. LYRICA [Concomitant]
     Indication: LUMBAR SPINAL STENOSIS
     Route: 048
     Dates: start: 20111228, end: 20120111
  9. LYRICA [Concomitant]
     Indication: PAIN
     Route: 048
     Dates: start: 20120111, end: 20120626
  10. LYRICA [Concomitant]
     Indication: PAIN
     Route: 048
     Dates: start: 20120627
  11. LYRICA [Concomitant]
     Indication: PAIN
     Route: 048
     Dates: end: 20111227
  12. LYRICA [Concomitant]
     Indication: PAIN
     Route: 048
     Dates: start: 20111228, end: 20120111

REACTIONS (1)
  - Sleep apnoea syndrome [Recovering/Resolving]
